FAERS Safety Report 12845519 (Version 2)
Quarter: 2019Q1

REPORT INFORMATION
  Report Type: Spontaneous
  Country: US (occurrence: US)
  Receive Date: 20161013
  Receipt Date: 20190228
  Transmission Date: 20190417
  Serious: No
  Sender: FDA-Public Use
  Company Number: US-JAZZ-2016-US-013851

PATIENT
  Age: 50 Year
  Sex: Female

DRUGS (23)
  1. SOTALOL. [Concomitant]
     Active Substance: SOTALOL
  2. ESTRADIOL. [Concomitant]
     Active Substance: ESTRADIOL
  3. LEVOTHYROXINE. [Concomitant]
     Active Substance: LEVOTHYROXINE
  4. SUCRALFATE. [Concomitant]
     Active Substance: SUCRALFATE
  5. EPIPEN [Concomitant]
     Active Substance: EPINEPHRINE
  6. XYREM [Suspect]
     Active Substance: SODIUM OXYBATE
     Indication: NARCOLEPSY
     Dosage: 2.25 G, BID
     Route: 048
     Dates: start: 201404, end: 201409
  7. ENJUVIA [Concomitant]
     Active Substance: ESTROGENS, CONJUGATED SYNTHETIC B
  8. FOLIC ACID. [Concomitant]
     Active Substance: FOLIC ACID
  9. MAXALT [Concomitant]
     Active Substance: RIZATRIPTAN BENZOATE
  10. METHYLPHENIDATE. [Concomitant]
     Active Substance: METHYLPHENIDATE
  11. XYREM [Suspect]
     Active Substance: SODIUM OXYBATE
     Dosage: 3 G, BID
     Route: 048
     Dates: start: 201409
  12. VYVANSE [Concomitant]
     Active Substance: LISDEXAMFETAMINE DIMESYLATE
  13. VITAMIN D [Concomitant]
     Active Substance: CHOLECALCIFEROL
  14. PREMARIN [Concomitant]
     Active Substance: ESTROGENS, CONJUGATED
  15. OXYBUTYNIN CHLORIDE. [Concomitant]
     Active Substance: OXYBUTYNIN CHLORIDE
  16. BUPROPION HCL [Concomitant]
     Active Substance: BUPROPION HYDROCHLORIDE
  17. URELLE [Concomitant]
     Active Substance: HYOSCYAMINE SULFATE\METHENAMINE\METHYLENE BLUE\PHENYL SALICYLATE\SODIUM PHOSPHATE, MONOBASIC, MONOHYDRATE
  18. VALPROIC ACID. [Concomitant]
     Active Substance: VALPROIC ACID
  19. FLUOXETINE HCL [Concomitant]
     Active Substance: FLUOXETINE HYDROCHLORIDE
  20. PROAIR HFA [Concomitant]
     Active Substance: ALBUTEROL SULFATE
  21. PROMETHAZINE [Suspect]
     Active Substance: PROMETHAZINE\PROMETHAZINE HYDROCHLORIDE
     Indication: PRODUCT USED FOR UNKNOWN INDICATION
     Dosage: UNK
  22. LAMICTAL [Concomitant]
     Active Substance: LAMOTRIGINE
  23. MACRODANTIN [Concomitant]
     Active Substance: NITROFURANTOIN

REACTIONS (2)
  - Drug interaction [Unknown]
  - Gastroenteritis viral [Recovered/Resolved]

NARRATIVE: CASE EVENT DATE: 201605
